FAERS Safety Report 15786911 (Version 3)
Quarter: 2019Q2

REPORT INFORMATION
  Report Type: Not Available
  Country: US (occurrence: US)
  Receive Date: 20190103
  Receipt Date: 20190618
  Transmission Date: 20190711
  Serious: No
  Sender: FDA-Public Use
  Company Number: US-NEUROCRINE BIOSCIENCES INC.-2018NBI03645

PATIENT
  Age: 68 Year
  Sex: Female

DRUGS (1)
  1. INGREZZA [Suspect]
     Active Substance: VALBENAZINE
     Indication: TARDIVE DYSKINESIA
     Route: 048
     Dates: start: 20181204, end: 20190422

REACTIONS (3)
  - Tardive dyskinesia [Recovered/Resolved]
  - Drug ineffective [None]
  - Pain [Unknown]

NARRATIVE: CASE EVENT DATE: 201812
